FAERS Safety Report 21379042 (Version 1)
Quarter: 2022Q3

REPORT INFORMATION
  Report Type: Report from Study
  Country: CZ (occurrence: CZ)
  Receive Date: 20220927
  Receipt Date: 20220927
  Transmission Date: 20221027
  Serious: Yes (Hospitalization)
  Sender: FDA-Public Use
  Company Number: CZ-SAMSUNG BIOEPIS-SB-2022-24173

PATIENT
  Age: 75 Year
  Sex: Male

DRUGS (1)
  1. ETANERCEPT [Suspect]
     Active Substance: ETANERCEPT
     Indication: Ankylosing spondylitis
     Dosage: UNKNOWN
     Route: 065
     Dates: end: 20220720

REACTIONS (3)
  - Cholecystitis infective [Not Recovered/Not Resolved]
  - Gallbladder abscess [Not Recovered/Not Resolved]
  - Gallbladder rupture [Not Recovered/Not Resolved]

NARRATIVE: CASE EVENT DATE: 20220727
